FAERS Safety Report 5201944-3 (Version None)
Quarter: 2007Q1

REPORT INFORMATION
  Report Type: 
  Country: None (occurrence: None)
  Receive Date: 20070104
  Receipt Date: 20061222
  Transmission Date: 20070707
  Serious: Yes (Other)
  Sender: FDA-Public Use
  Company Number: 151209ISR

PATIENT
  Sex: Female

DRUGS (2)
  1. IBUPROFEN [Suspect]
     Route: 048
  2. PAROXETINE HYDROCHLORIDE [Suspect]
     Dates: start: 19970902, end: 20010101

REACTIONS (8)
  - ANXIETY [None]
  - DRUG WITHDRAWAL SYNDROME [None]
  - DRY MOUTH [None]
  - FEELING ABNORMAL [None]
  - HYPERHIDROSIS [None]
  - OVERDOSE [None]
  - PRURITUS [None]
  - SUICIDAL IDEATION [None]
